FAERS Safety Report 6474149-6 (Version None)
Quarter: 2009Q4

REPORT INFORMATION
  Report Type: 
  Country: None (occurrence: None)
  Receive Date: 20091204
  Receipt Date: 20091130
  Transmission Date: 20100525
  Serious: Yes (Hospitalization, Other)
  Sender: FDA-Public Use
  Company Number: US-BAYER-200917187BCC

PATIENT
  Age: 66 Year
  Sex: Female

DRUGS (1)
  1. ASPIRIN [Suspect]
     Indication: HEADACHE
     Route: 048
     Dates: start: 19910101

REACTIONS (3)
  - ABDOMINAL PAIN UPPER [None]
  - FEELING JITTERY [None]
  - HAEMATEMESIS [None]
